FAERS Safety Report 5674210-X (Version None)
Quarter: 2008Q1

REPORT INFORMATION
  Report Type: 
  Country: None (occurrence: None)
  Receive Date: 20080320
  Receipt Date: 20080313
  Transmission Date: 20080703
  Serious: Yes (Hospitalization, Disabling, Other)
  Sender: FDA-Public Use
  Company Number: HQWYE301521JUL04

PATIENT
  Sex: Female
  Weight: 49.94 kg

DRUGS (1)
  1. PREMARIN [Suspect]
     Indication: HORMONE REPLACEMENT THERAPY
     Dosage: UNKNOWN
     Route: 065
     Dates: start: 19790201, end: 20030501

REACTIONS (2)
  - SYSTEMIC LUPUS ERYTHEMATOSUS [None]
  - VENTRICULAR TACHYCARDIA [None]
